FAERS Safety Report 5377420-4 (Version None)
Quarter: 2007Q3

REPORT INFORMATION
  Report Type: 
  Country: None (occurrence: None)
  Receive Date: 20070703
  Receipt Date: 20070626
  Transmission Date: 20080115
  Serious: Yes (Hospitalization)
  Sender: FDA-Public Use
  Company Number: B0477111A

PATIENT
  Age: 46 Year
  Sex: Male

DRUGS (4)
  1. AMOXICILLIN TRIHYDRATE [Suspect]
     Indication: HELICOBACTER INFECTION
     Dosage: 1500MG PER DAY
     Route: 048
     Dates: start: 20030201, end: 20070207
  2. TAKEPRON [Suspect]
     Indication: HELICOBACTER INFECTION
     Dosage: 60MG PER DAY
     Route: 048
     Dates: start: 20030201, end: 20070207
  3. CLARITHROMYCIN [Concomitant]
     Indication: HELICOBACTER INFECTION
     Dosage: 400MG PER DAY
     Route: 048
     Dates: start: 20030201, end: 20070207
  4. NEUER [Concomitant]
     Dosage: 2000MG PER DAY
     Route: 048
     Dates: start: 20030201, end: 20070207

REACTIONS (5)
  - ABDOMINAL PAIN [None]
  - CLOSTRIDIUM DIFFICILE COLITIS [None]
  - DIARRHOEA [None]
  - ENTEROCOLITIS HAEMORRHAGIC [None]
  - HAEMATOCHEZIA [None]
